FAERS Safety Report 20777622 (Version 1)
Quarter: 2022Q2

REPORT INFORMATION
  Report Type: Spontaneous
  Country: US (occurrence: None)
  Receive Date: 20220502
  Receipt Date: 20220502
  Transmission Date: 20220721
  Serious: No
  Sender: FDA-Public Use
  Company Number: None

PATIENT
  Sex: Male

DRUGS (1)
  1. CYCLOPHOSPHAMIDE [Suspect]
     Active Substance: CYCLOPHOSPHAMIDE
     Dates: start: 20220422

REACTIONS (4)
  - Blood pressure decreased [None]
  - Heart rate increased [None]
  - Oxygen consumption decreased [None]
  - Infusion related reaction [None]

NARRATIVE: CASE EVENT DATE: 20220422
